FAERS Safety Report 22140180 (Version 1)
Quarter: 2023Q1

REPORT INFORMATION
  Report Type: Spontaneous
  Country: US (occurrence: None)
  Receive Date: 20230326
  Receipt Date: 20230326
  Transmission Date: 20230417
  Serious: No
  Sender: FDA-Public Use
  Company Number: None

PATIENT
  Sex: Female

DRUGS (1)
  1. LAGEVRIO [Suspect]
     Active Substance: MOLNUPIRAVIR
     Indication: COVID-19
     Dosage: 40 CAPSULES EVERY 12 HOURS ORAL
     Route: 048
     Dates: start: 20230227, end: 20230303

REACTIONS (1)
  - Rash [None]

NARRATIVE: CASE EVENT DATE: 20230301
